FAERS Safety Report 20362106 (Version 1)
Quarter: 2022Q1

REPORT INFORMATION
  Report Type: Spontaneous
  Country: US (occurrence: US)
  Receive Date: 20220121
  Receipt Date: 20220121
  Transmission Date: 20220423
  Serious: No
  Sender: FDA-Public Use
  Company Number: US-PFIZER INC-2021523621

PATIENT
  Age: 70 Year
  Sex: Female
  Weight: 58.97 kg

DRUGS (3)
  1. LATANOPROST [Suspect]
     Active Substance: LATANOPROST
     Indication: Borderline glaucoma
     Dosage: 1 DROP IN EACH EYE
  2. LATANOPROST [Suspect]
     Active Substance: LATANOPROST
     Indication: Visual field defect
  3. ALENDRONATE SODIUM [Concomitant]
     Active Substance: ALENDRONATE SODIUM
     Indication: Bone density abnormal
     Dosage: 7 MG

REACTIONS (2)
  - Foreign body sensation in eyes [Not Recovered/Not Resolved]
  - Lacrimation increased [Unknown]

NARRATIVE: CASE EVENT DATE: 20210509
